FAERS Safety Report 14701942 (Version 1)
Quarter: 2018Q1

REPORT INFORMATION
  Report Type: Spontaneous
  Country: IT (occurrence: IT)
  Receive Date: 20180331
  Receipt Date: 20180331
  Transmission Date: 20180509
  Serious: Yes (Death, Hospitalization, Other)
  Sender: FDA-Public Use
  Company Number: IT-AUROBINDO-AUR-APL-2018-016841

PATIENT
  Sex: Male

DRUGS (14)
  1. DOLUTEGRAVIR [Suspect]
     Active Substance: DOLUTEGRAVIR
     Indication: HIV INFECTION
     Route: 065
  2. MOXIFLOXACIN. [Suspect]
     Active Substance: MOXIFLOXACIN
     Indication: MYCOBACTERIAL INFECTION
     Dosage: ()
     Route: 065
  3. CLARITHROMYCIN. [Suspect]
     Active Substance: CLARITHROMYCIN
     Indication: MYCOBACTERIAL INFECTION
     Dosage: ()
     Route: 065
  4. RITONAVIR. [Suspect]
     Active Substance: RITONAVIR
     Indication: HIV INFECTION
     Route: 065
  5. ETHAMBUTOL [Suspect]
     Active Substance: ETHAMBUTOL HYDROCHLORIDE
     Indication: LEISHMANIASIS
     Route: 065
  6. DARUNAVIR [Suspect]
     Active Substance: DARUNAVIR
     Indication: HIV INFECTION
     Route: 048
  7. AMPHOTERICIN B. [Suspect]
     Active Substance: AMPHOTERICIN B
     Indication: LEISHMANIASIS
     Dosage: ()
  8. MOXIFLOXACIN. [Suspect]
     Active Substance: MOXIFLOXACIN
     Indication: LEISHMANIASIS
     Dosage: ()
  9. ATOVAQUONE. [Concomitant]
     Active Substance: ATOVAQUONE
     Indication: PRODUCT USED FOR UNKNOWN INDICATION
  10. RIFABUTIN. [Suspect]
     Active Substance: RIFABUTIN
     Indication: MYCOBACTERIAL INFECTION
     Dosage: ()
     Route: 065
  11. RIFABUTIN. [Suspect]
     Active Substance: RIFABUTIN
     Indication: LEISHMANIASIS
     Route: 065
  12. CLARITHROMYCIN. [Suspect]
     Active Substance: CLARITHROMYCIN
     Indication: LEISHMANIASIS
     Route: 065
  13. AMPHOTERICIN B. [Suspect]
     Active Substance: AMPHOTERICIN B
     Indication: MYCOBACTERIAL INFECTION
     Dosage: ()
     Route: 065
  14. ETHAMBUTOL [Suspect]
     Active Substance: ETHAMBUTOL HYDROCHLORIDE
     Indication: MYCOBACTERIAL INFECTION
     Dosage: ()
     Route: 065

REACTIONS (5)
  - Mycobacterial infection [Fatal]
  - Leishmaniasis [Fatal]
  - Ascites [Fatal]
  - Drug level decreased [Fatal]
  - Chylothorax [Fatal]
